FAERS Safety Report 16426247 (Version 3)
Quarter: 2019Q3

REPORT INFORMATION
  Report Type: Report from Study
  Country: JP (occurrence: JP)
  Receive Date: 20190613
  Receipt Date: 20190724
  Transmission Date: 20191004
  Serious: Yes (Hospitalization)
  Sender: FDA-Public Use
  Company Number: JP-ACTELION-A-CH2019-191509

PATIENT
  Age: 61 Year
  Sex: Female

DRUGS (9)
  1. ADCIRCA [Concomitant]
     Active Substance: TADALAFIL
  2. VALACICLOVIR [Concomitant]
     Active Substance: VALACYCLOVIR HYDROCHLORIDE
  3. BAYASPIRIN [Concomitant]
     Active Substance: ASPIRIN
  4. OPSUMIT [Suspect]
     Active Substance: MACITENTAN
     Indication: PULMONARY ARTERIAL HYPERTENSION
     Dosage: 10 MG, OD
     Route: 048
     Dates: start: 20190206, end: 20190302
  5. UPTRAVI [Concomitant]
     Active Substance: SELEXIPAG
  6. JAKAVI [Suspect]
     Active Substance: RUXOLITINIB
     Indication: MYELOFIBROSIS
     Dosage: 50 MG, QD
     Route: 048
  7. PARIET [Concomitant]
     Active Substance: RABEPRAZOLE SODIUM
  8. ZYLORIC [Concomitant]
     Active Substance: ALLOPURINOL
  9. OXYGEN. [Concomitant]
     Active Substance: OXYGEN

REACTIONS (9)
  - Pancytopenia [Recovering/Resolving]
  - Platelet count decreased [Recovering/Resolving]
  - Haemoglobin decreased [Recovering/Resolving]
  - Transfusion [Unknown]
  - White blood cell count decreased [Recovering/Resolving]
  - Pleural effusion [Recovering/Resolving]
  - Anaemia [Recovering/Resolving]
  - Cardiac failure [Recovering/Resolving]
  - Red blood cell count abnormal [Recovering/Resolving]

NARRATIVE: CASE EVENT DATE: 20190212
